FAERS Safety Report 9107338 (Version 1)
Quarter: 2013Q1

REPORT INFORMATION
  Report Type: Spontaneous
  Country: US (occurrence: US)
  Receive Date: 20130221
  Receipt Date: 20130221
  Transmission Date: 20140127
  Serious: No
  Sender: FDA-Public Use
  Company Number: US-009507513-1302USA009504

PATIENT
  Sex: Female

DRUGS (11)
  1. NASONEX [Suspect]
     Indication: EAR DISORDER
     Dosage: 2 PUFFS IN EACH NOSTRIL AT NIGHT
     Route: 045
     Dates: start: 201210, end: 20130215
  2. SYNTHROID [Concomitant]
  3. PROTONIX [Concomitant]
  4. AMITRIPTYLINE HYDROCHLORIDE [Concomitant]
  5. LIVALO [Concomitant]
  6. CALCITRIOL [Concomitant]
  7. LIALDA [Concomitant]
  8. ALIGN [Concomitant]
  9. CENTRUM (MINERALS (UNSPECIFIED) (+) VITAMINS (UNSPECIFIED)) [Concomitant]
  10. PROLIA [Concomitant]
  11. CYANOCOBALAMIN [Concomitant]

REACTIONS (4)
  - Epistaxis [Recovering/Resolving]
  - Cough [Recovering/Resolving]
  - Chest discomfort [Recovering/Resolving]
  - Dyspnoea [Recovering/Resolving]
